FAERS Safety Report 6415906-1 (Version None)
Quarter: 2009Q4

REPORT INFORMATION
  Report Type: 
  Country: None (occurrence: None)
  Receive Date: 20091027
  Receipt Date: 20091022
  Transmission Date: 20100525
  Serious: Yes (Hospitalization)
  Sender: FDA-Public Use
  Company Number: A0805933A

PATIENT
  Sex: Male
  Weight: 60 kg

DRUGS (3)
  1. SERETIDE [Suspect]
     Dosage: 2PUFF TWICE PER DAY
     Route: 055
     Dates: start: 20090201
  2. SERTRALINE HCL [Concomitant]
     Dosage: 50MG PER DAY
     Dates: start: 20081201
  3. PANTOPRAZOLE SODIUM [Concomitant]
     Dosage: 1TAB TWICE PER DAY
     Route: 048

REACTIONS (2)
  - ASTHMATIC CRISIS [None]
  - OVERDOSE [None]
